FAERS Safety Report 10488509 (Version 1)
Quarter: 2014Q4

REPORT INFORMATION
  Report Type: Spontaneous
  Country: US (occurrence: US)
  Receive Date: 20141002
  Receipt Date: 20141002
  Transmission Date: 20150528
  Serious: Yes (Hospitalization, Other)
  Sender: FDA-Public Use
  Company Number: US-BEH-2014045219

PATIENT
  Age: 64 Year
  Sex: Male
  Weight: 86 kg

DRUGS (13)
  1. CENTRUM SILVER [Concomitant]
     Active Substance: VITAMINS
  2. ZEMAIRA [Suspect]
     Active Substance: .ALPHA.1-PROTEINASE INHIBITOR HUMAN
     Indication: ALPHA-1 ANTI-TRYPSIN DEFICIENCY
     Route: 042
  3. PREDNISONE. [Concomitant]
     Active Substance: PREDNISONE
  4. ALL OTHER THERAPEUTIC PRODUCTS [Concomitant]
     Active Substance: UNSPECIFIED INGREDIENT
  5. CVS VITAMIN D3 [Concomitant]
  6. TYLENOL EX-STR [Concomitant]
  7. HEPARIN [Concomitant]
     Active Substance: HEPARIN SODIUM
  8. ALL OTHER THERAPEUTIC PRODUCTS [Concomitant]
     Active Substance: UNSPECIFIED INGREDIENT
  9. EPIPEN [Concomitant]
     Active Substance: EPINEPHRINE
  10. LIDOCAINE/PRILOCAINE [Concomitant]
  11. CVS IBUPROFEN [Concomitant]
  12. ALL OTHER THERAPEUTIC PRODUCTS [Concomitant]
     Active Substance: UNSPECIFIED INGREDIENT
  13. DIPHENHYDRAMINE [Concomitant]
     Active Substance: DIPHENHYDRAMINE

REACTIONS (1)
  - Pulmonary embolism [Recovered/Resolved]

NARRATIVE: CASE EVENT DATE: 20140917
